FAERS Safety Report 9366433 (Version 2)
Quarter: 2014Q3

REPORT INFORMATION
  Report Type: Spontaneous
  Country: FR (occurrence: FR)
  Receive Date: 20130625
  Receipt Date: 20140707
  Transmission Date: 20150326
  Serious: Yes (Hospitalization)
  Sender: FDA-Public Use
  Company Number: FR-TEVA-414760ISR

PATIENT
  Sex: Female

DRUGS (4)
  1. FUROSEMIDE TEVA 40MG [Suspect]
     Active Substance: FUROSEMIDE
  2. FUROSEMIDE. [Suspect]
     Active Substance: FUROSEMIDE
     Dates: start: 201304, end: 201305
  3. FUROSEMIDE TEVA 40MG [Suspect]
     Active Substance: FUROSEMIDE
     Dosage: 3 DOSAGE FORMS DAILY; 2 IN THE MORNING AND ONE IN THE EVENING
     Dates: start: 2013, end: 2013
  4. FUROSEMIDE TEVA 40MG [Suspect]
     Active Substance: FUROSEMIDE
     Dosage: 2 DOSAGE FORMS DAILY;
     Dates: start: 201305, end: 2013

REACTIONS (6)
  - Oedema [Unknown]
  - Fall [Unknown]
  - Balance disorder [Unknown]
  - Fatigue [Unknown]
  - Weight increased [Recovering/Resolving]
  - Nervousness [Unknown]

NARRATIVE: CASE EVENT DATE: 2013
